FAERS Safety Report 11234587 (Version 1)
Quarter: 2015Q2

REPORT INFORMATION
  Report Type: Spontaneous
  Country: US (occurrence: None)
  Receive Date: 20150630
  Receipt Date: 20150630
  Transmission Date: 20150821
  Serious: No
  Sender: FDA-Public Use
  Company Number: 1210513-2015-00140

PATIENT
  Sex: Male

DRUGS (1)
  1. WALMART EQUATE ORASOL (SHEFFIELD PHARMACEUTICALS) [Suspect]
     Active Substance: BENZOCAINE
     Indication: ANALGESIC THERAPY
     Route: 048
     Dates: start: 20150512, end: 20150515

REACTIONS (1)
  - Application site hypoaesthesia [None]

NARRATIVE: CASE EVENT DATE: 20150515
